FAERS Safety Report 6701700-0 (Version None)
Quarter: 2010Q2

REPORT INFORMATION
  Report Type: 
  Country: None (occurrence: None)
  Receive Date: 20100429
  Receipt Date: 20100414
  Transmission Date: 20101027
  Serious: Yes (Hospitalization)
  Sender: FDA-Public Use
  Company Number: IL-BAYER-201023010GPV

PATIENT
  Age: 52 Year
  Sex: Male

DRUGS (2)
  1. ALEMTUZUMAB [Suspect]
     Indication: MULTIPLE SCLEROSIS
     Dosage: MONTH 0
     Route: 042
     Dates: start: 20090419, end: 20090423
  2. METHYLPREDNISOLONE [Concomitant]
     Dates: start: 20090419, end: 20090421

REACTIONS (1)
  - APPENDICECTOMY [None]
